FAERS Safety Report 20950057 (Version 2)
Quarter: 2022Q4

REPORT INFORMATION
  Report Type: Report from Study
  Country: CA (occurrence: CA)
  Receive Date: 20220613
  Receipt Date: 20221212
  Transmission Date: 20230113
  Serious: Yes (Hospitalization)
  Sender: FDA-Public Use
  Company Number: CA-BoehringerIngelheim-2021-BI-125643

PATIENT
  Age: 55 Year
  Sex: Male

DRUGS (2)
  1. OFEV [Suspect]
     Active Substance: NINTEDANIB
     Indication: Idiopathic pulmonary fibrosis
     Dosage: 100 MG OD ?PATIENT REPORTED HE TOOK THE MEDICATION BID WHEN MD SCRIPT WAS FOR OD X 2 MTHS
     Dates: start: 20210904, end: 20211129
  2. OFEV [Suspect]
     Active Substance: NINTEDANIB

REACTIONS (6)
  - Liver disorder [Not Recovered/Not Resolved]
  - Swelling face [Not Recovered/Not Resolved]
  - Oedema peripheral [Not Recovered/Not Resolved]
  - Abdominal pain [Not Recovered/Not Resolved]
  - Abdominal discomfort [Not Recovered/Not Resolved]
  - Dry mouth [Not Recovered/Not Resolved]

NARRATIVE: CASE EVENT DATE: 20211126
